FAERS Safety Report 9632464 (Version 1)
Quarter: 2013Q4

REPORT INFORMATION
  Report Type: Spontaneous
  Country: US (occurrence: None)
  Receive Date: 20131018
  Receipt Date: 20131018
  Transmission Date: 20140711
  Serious: Yes (Hospitalization)
  Sender: FDA-Public Use
  Company Number: None

PATIENT
  Age: 69 Year
  Sex: Female
  Weight: 74.21 kg

DRUGS (1)
  1. TOLVAPTAN [Suspect]
     Indication: ASCITES
     Route: 048
     Dates: start: 20130826, end: 20130902

REACTIONS (3)
  - Pleural effusion [None]
  - Nausea [None]
  - Diarrhoea [None]
